FAERS Safety Report 5730708-7 (Version None)
Quarter: 2008Q2

REPORT INFORMATION
  Report Type: 
  Country: None (occurrence: None)
  Receive Date: 20080507
  Receipt Date: 20080429
  Transmission Date: 20081010
  Serious: Yes (Other)
  Sender: FDA-Public Use
  Company Number: US-PFIZER INC-2007047691

PATIENT
  Sex: Female
  Weight: 51.7 kg

DRUGS (3)
  1. LIPITOR [Suspect]
     Indication: BLOOD CHOLESTEROL INCREASED
     Dates: start: 20070201, end: 20070401
  2. FOSAMAX [Concomitant]
     Indication: OSTEOPOROSIS
  3. TOPROL-XL [Concomitant]

REACTIONS (11)
  - ABDOMINAL PAIN LOWER [None]
  - BACTERIA URINE [None]
  - BURNING SENSATION [None]
  - CYSTITIS [None]
  - NEURITIS [None]
  - PAIN IN EXTREMITY [None]
  - RESIDUAL URINE [None]
  - URINARY INCONTINENCE [None]
  - URINARY TRACT DISORDER [None]
  - URINARY TRACT INFECTION [None]
  - VAGINAL PAIN [None]
